FAERS Safety Report 13949153 (Version 1)
Quarter: 2017Q3

REPORT INFORMATION
  Report Type: Spontaneous
  Country: US (occurrence: None)
  Receive Date: 20170908
  Receipt Date: 20170908
  Transmission Date: 20171128
  Serious: No
  Sender: FDA-Public Use
  Company Number: None

PATIENT
  Age: 26 Year
  Sex: Female
  Weight: 77.11 kg

DRUGS (1)
  1. LOW-OGESTREL [Suspect]
     Active Substance: ETHINYL ESTRADIOL\NORGESTREL
     Indication: MENSTRUATION IRREGULAR
     Dosage: DATES OF USE - PRIOR TO OUR OFFICE 2/17; NO RECORDS?DOSE X1 - 0.3 - 0.03MG
     Route: 048

REACTIONS (2)
  - Panic attack [None]
  - Depression [None]
